FAERS Safety Report 7888892-5 (Version None)
Quarter: 2011Q4

REPORT INFORMATION
  Report Type: 
  Country: None (occurrence: None)
  Receive Date: 20111103
  Receipt Date: 20111027
  Transmission Date: 20120403
  Serious: Yes (Life-Threatening, Hospitalization)
  Sender: FDA-Public Use
  Company Number: GB-MPIJNJ-2011-04200

PATIENT

DRUGS (5)
  1. FUROSEMIDE [Concomitant]
     Dosage: 40 MG, UNK
     Route: 042
  2. VELCADE [Suspect]
     Indication: MULTIPLE MYELOMA
     Dosage: 1.65 MG, CYCLIC
     Route: 042
     Dates: start: 20110812, end: 20110822
  3. DEXAMETHASONE [Suspect]
     Indication: MULTIPLE MYELOMA
     Dosage: 20 MG, UNK
     Route: 048
     Dates: start: 20110812, end: 20110823
  4. ONDANSETRON [Concomitant]
     Dosage: 8 MG, UNK
     Route: 042
  5. FLEET PHOSPHATE ENEMA [Concomitant]
     Dosage: UNK
     Route: 054
     Dates: start: 20110825

REACTIONS (2)
  - PEPTIC ULCER PERFORATION [None]
  - INFECTIOUS PERITONITIS [None]
